FAERS Safety Report 6544589-5 (Version None)
Quarter: 2010Q1

REPORT INFORMATION
  Report Type: 
  Country: None (occurrence: None)
  Receive Date: 20100121
  Receipt Date: 20100112
  Transmission Date: 20100710
  Serious: Yes (Hospitalization)
  Sender: FDA-Public Use
  Company Number: DE-MPIJNJ-2010-00673

PATIENT

DRUGS (4)
  1. VELCADE [Suspect]
     Indication: MULTIPLE MYELOMA
     Dosage: 2.6 MG, UNK
     Route: 042
     Dates: start: 20091218
  2. FORTECORTIN [Suspect]
     Indication: MULTIPLE MYELOMA
     Dosage: 20 MG, UNK
     Route: 048
     Dates: start: 20091218
  3. ENDOXAN [Suspect]
     Indication: MULTIPLE MYELOMA
     Dosage: 50 MG, UNK
     Route: 048
     Dates: start: 20091218
  4. MARCUMAR [Suspect]
     Indication: ATRIAL FIBRILLATION

REACTIONS (4)
  - ANAEMIA [None]
  - HAEMORRHAGE [None]
  - SYNCOPE [None]
  - TENDON RUPTURE [None]
